FAERS Safety Report 8045411-0 (Version None)
Quarter: 2012Q1

REPORT INFORMATION
  Report Type: 
  Country: None (occurrence: None)
  Receive Date: 20120113
  Receipt Date: 20120109
  Transmission Date: 20120608
  Serious: No
  Sender: FDA-Public Use
  Company Number: US-B.I. PHARMACEUTICALS,INC./RIDGEFIELD-2012-BP-00445BP

PATIENT
  Sex: Female

DRUGS (5)
  1. PRIMROSE OIL [Concomitant]
     Indication: MENOPAUSE
     Route: 048
  2. SPIRIVA [Suspect]
     Indication: CHRONIC OBSTRUCTIVE PULMONARY DISEASE
     Dosage: 18 MCG
     Route: 055
     Dates: start: 20070101, end: 20111222
  3. XANAX [Concomitant]
     Indication: INSOMNIA
     Dosage: 0.5 MG
     Route: 048
  4. XANAX [Concomitant]
     Indication: ANXIETY
  5. VITAMIN E [Concomitant]
     Indication: SUPPLEMENTATION THERAPY
     Route: 048

REACTIONS (4)
  - PRODUCTIVE COUGH [None]
  - OROPHARYNGEAL PAIN [None]
  - DYSPNOEA [None]
  - HEART RATE INCREASED [None]
